FAERS Safety Report 20777583 (Version 1)
Quarter: 2022Q2

REPORT INFORMATION
  Report Type: Spontaneous
  Country: US (occurrence: None)
  Receive Date: 20220502
  Receipt Date: 20220502
  Transmission Date: 20220721
  Serious: No
  Sender: FDA-Public Use
  Company Number: None

PATIENT
  Age: 55 Year
  Sex: Female
  Weight: 63 kg

DRUGS (2)
  1. PAXLOVID [Suspect]
     Active Substance: NIRMATRELVIR\RITONAVIR
     Indication: COVID-19
     Dosage: FREQUENCY : EVERY 12 HOURS;?
     Route: 048
     Dates: start: 20220420, end: 20220425
  2. Tylenol 650 mg every 8 hours prn [Concomitant]

REACTIONS (7)
  - Nasal congestion [None]
  - Cough [None]
  - Throat irritation [None]
  - Fatigue [None]
  - Muscle spasms [None]
  - Burning sensation [None]
  - Insomnia [None]

NARRATIVE: CASE EVENT DATE: 20220429
